FAERS Safety Report 24333198 (Version 1)
Quarter: 2024Q3

REPORT INFORMATION
  Report Type: Report from Study
  Country: IT (occurrence: IT)
  Receive Date: 20240918
  Receipt Date: 20240918
  Transmission Date: 20241017
  Serious: Yes (Other)
  Sender: MYLAN
  Company Number: None

PATIENT
  Age: 58 Year
  Sex: Male
  Weight: 78 kg

DRUGS (5)
  1. CLOZAPINE [Suspect]
     Active Substance: CLOZAPINE
     Indication: Product used for unknown indication
     Dosage: 400 MILLIGRAM, QD (400 MG PER DAY)
     Route: 065
  2. NEBIVOLOL [Concomitant]
     Active Substance: NEBIVOLOL
     Dosage: UNK
     Route: 065
     Dates: start: 201311
  3. LORAZEPAM [Concomitant]
     Active Substance: LORAZEPAM
     Dosage: 3 MILLIGRAM, QD (3 MG PER DAY)
     Route: 065
  4. VALPROATE SODIUM [Concomitant]
     Active Substance: VALPROATE SODIUM
     Dosage: 600 MILLIGRAM, QD (600 MG PER DAY)
     Route: 048
  5. AMISULPRIDE [Concomitant]
     Active Substance: AMISULPRIDE
     Dosage: 200 MILLIGRAM, QD (200 MG PER DAY)
     Route: 065

REACTIONS (6)
  - Erectile dysfunction [Not Recovered/Not Resolved]
  - Anorgasmia [Not Recovered/Not Resolved]
  - Salivary hypersecretion [Not Recovered/Not Resolved]
  - Nausea [Not Recovered/Not Resolved]
  - Vomiting [Not Recovered/Not Resolved]
  - Weight increased [Not Recovered/Not Resolved]
